FAERS Safety Report 25726001 (Version 3)
Quarter: 2025Q4

REPORT INFORMATION
  Report Type: Report from Study
  Country: US (occurrence: US)
  Receive Date: 20250826
  Receipt Date: 20251120
  Transmission Date: 20260117
  Serious: Yes (Other)
  Sender: ABBVIE
  Company Number: US-ABBVIE-6112761

PATIENT
  Age: 63 Year
  Sex: Male

DRUGS (1)
  1. RINVOQ [Suspect]
     Active Substance: UPADACITINIB
     Indication: Rheumatoid arthritis
     Route: 048
     Dates: start: 20240923

REACTIONS (7)
  - Glaucoma [Unknown]
  - Visual impairment [Recovering/Resolving]
  - Polyarthritis [Recovered/Resolved]
  - Hypoacusis [Recovering/Resolving]
  - Peripheral swelling [Not Recovered/Not Resolved]
  - Impaired healing [Recovering/Resolving]
  - Eye inflammation [Not Recovered/Not Resolved]

NARRATIVE: CASE EVENT DATE: 20250124
